FAERS Safety Report 8088990-X (Version None)
Quarter: 2012Q1

REPORT INFORMATION
  Report Type: 
  Country: None (occurrence: None)
  Receive Date: 20120128
  Receipt Date: 20110706
  Transmission Date: 20120608
  Serious: Yes (Hospitalization)
  Sender: FDA-Public Use
  Company Number: US-ABBOTT-11P-163-0837205-00

PATIENT
  Sex: Female
  Weight: 149.82 kg

DRUGS (11)
  1. PREDNISONE TAB [Concomitant]
     Indication: RHEUMATOID ARTHRITIS
  2. POTASSIUM [Concomitant]
     Indication: BLOOD POTASSIUM DECREASED
  3. HUMIRA [Suspect]
     Indication: RHEUMATOID ARTHRITIS
     Dates: start: 20090101, end: 20110101
  4. CYMBALTA [Concomitant]
     Indication: DEPRESSION
  5. HYDROCHLOROTHIAZIDE [Concomitant]
     Indication: HYPERTENSION
  6. METHOTREXATE [Concomitant]
     Indication: RHEUMATOID ARTHRITIS
  7. CYMBALTA [Concomitant]
     Indication: FIBROMYALGIA
  8. ATENOLOL [Concomitant]
     Indication: HYPERTENSION
  9. NEXIUM [Concomitant]
     Indication: GASTROOESOPHAGEAL REFLUX DISEASE
  10. FOLIC ACID [Concomitant]
     Indication: RHEUMATOID ARTHRITIS
  11. PROTEIN POWDER [Concomitant]
     Indication: PROTEIN TOTAL ABNORMAL

REACTIONS (2)
  - ARTHRITIS [None]
  - RHEUMATOID ARTHRITIS [None]
